FAERS Safety Report 7040070-8 (Version None)
Quarter: 2010Q4

REPORT INFORMATION
  Report Type: 
  Country: None (occurrence: None)
  Receive Date: 20101012
  Receipt Date: 20100928
  Transmission Date: 20110411
  Serious: Yes (Hospitalization, Other)
  Sender: FDA-Public Use
  Company Number: PHHY2010US54928

PATIENT
  Sex: Female
  Weight: 109.5 kg

DRUGS (11)
  1. GLEEVEC [Suspect]
     Indication: CHRONIC MYELOID LEUKAEMIA
     Dosage: 400 MG, DAILY
     Route: 048
     Dates: start: 20020501
  2. GLEEVEC [Suspect]
     Dosage: 400 MG DAILY
     Route: 048
     Dates: start: 20090216
  3. GLEEVEC [Suspect]
     Dosage: 100 MG AT BED TIME
     Route: 048
  4. INTERFERON ALFA [Suspect]
     Dosage: UNK
     Dates: start: 20020201, end: 20020401
  5. NEXIUM [Concomitant]
     Indication: GASTROINTESTINAL DISORDER
     Dosage: 40 MG, DAILY
  6. HCT [Concomitant]
     Indication: DIURETIC THERAPY
     Dosage: 25 MG, DAILY
     Route: 048
  7. PAXIL [Concomitant]
     Indication: ANTIDEPRESSANT THERAPY
     Dosage: 60 MG, DAILY
     Route: 048
     Dates: start: 20030822
  8. INDERAL [Concomitant]
     Indication: ANTIANGIOGENIC THERAPY
     Route: 048
  9. AUGMENTIN '125' [Concomitant]
     Dosage: 875/125 ONE, BID
     Route: 048
  10. PREDNISONE [Concomitant]
     Dosage: 30 MG, DAILY
  11. HYDROCODONE [Concomitant]
     Indication: PAIN
     Dosage: 5/500 ONE
     Route: 048

REACTIONS (26)
  - ARTHROPATHY [None]
  - ASPIRATION PLEURAL CAVITY [None]
  - BONE MARROW RETICULIN FIBROSIS [None]
  - CATHETER PLACEMENT [None]
  - CHEST PAIN [None]
  - CHEST TUBE INSERTION [None]
  - CHOLECYSTITIS CHRONIC [None]
  - CHRONIC LYMPHOCYTIC LEUKAEMIA [None]
  - GAIT DISTURBANCE [None]
  - HAEMATOCRIT DECREASED [None]
  - HAEMOGLOBIN DECREASED [None]
  - HIP ARTHROPLASTY [None]
  - HYPERTENSION [None]
  - LYMPHADENOPATHY MEDIASTINAL [None]
  - MEAN CELL HAEMOGLOBIN INCREASED [None]
  - MEAN CELL VOLUME INCREASED [None]
  - OBESITY [None]
  - OEDEMA PERIPHERAL [None]
  - OSTEONECROSIS [None]
  - PERICARDIAL EFFUSION [None]
  - PERIORBITAL OEDEMA [None]
  - PLEURAL EFFUSION [None]
  - PNEUMONIA [None]
  - RASH GENERALISED [None]
  - RED BLOOD CELL COUNT DECREASED [None]
  - WHITE BLOOD CELL COUNT DECREASED [None]
